FAERS Safety Report 10102047 (Version 1)
Quarter: 2014Q2

REPORT INFORMATION
  Report Type: Spontaneous
  Country: DZ (occurrence: DZ)
  Receive Date: 20140424
  Receipt Date: 20140424
  Transmission Date: 20141212
  Serious: Yes (Other)
  Sender: FDA-Public Use
  Company Number: DZ-B.I. PHARMACEUTICALS,INC./RIDGEFIELD-2014-BI-18312YA

PATIENT
  Age: 56 Year
  Sex: Male

DRUGS (3)
  1. JOSIR [Suspect]
     Indication: BENIGN PROSTATIC HYPERPLASIA
     Dosage: 0.4 MG
     Route: 048
  2. AMLODIPINE [Concomitant]
     Route: 065
  3. FUROSEMIDE [Concomitant]
     Route: 065

REACTIONS (2)
  - Bradycardia [Unknown]
  - Syncope [Unknown]
